FAERS Safety Report 6496395-8 (Version None)
Quarter: 2009Q4

REPORT INFORMATION
  Report Type: 
  Country: None (occurrence: None)
  Receive Date: 20091209
  Receipt Date: 20091127
  Transmission Date: 20100525
  Serious: Yes (Other)
  Sender: FDA-Public Use
  Company Number: 002577

PATIENT
  Age: 34 Year
  Sex: Female

DRUGS (4)
  1. VIMPAT [Suspect]
     Indication: EPILEPSY
     Dosage: (100 MG BID)
  2. KEPPRA [Suspect]
     Indication: EPILEPSY
     Dosage: (1000 MG)
  3. LAMOTRIGINE [Suspect]
     Indication: EPILEPSY
     Dosage: (200 MG)
  4. REBIF [Concomitant]

REACTIONS (2)
  - GRAND MAL CONVULSION [None]
  - HEADACHE [None]
